FAERS Safety Report 6440953-3 (Version None)
Quarter: 2009Q4

REPORT INFORMATION
  Report Type: 
  Country: None (occurrence: None)
  Receive Date: 20091116
  Receipt Date: 20091104
  Transmission Date: 20100525
  Serious: Yes (Other)
  Sender: FDA-Public Use
  Company Number: US-BRACCO-003674

PATIENT
  Sex: Male

DRUGS (17)
  1. METHADONE HCL [Concomitant]
  2. PROTONIX [Concomitant]
  3. MAGNEVIST [Suspect]
     Indication: ANGIOGRAM
     Route: 065
     Dates: start: 20021030, end: 20021030
  4. MAGNEVIST [Suspect]
     Indication: NUCLEAR MAGNETIC RESONANCE IMAGING
     Route: 065
     Dates: start: 20021030, end: 20021030
  5. EPOGEN [Concomitant]
  6. IRON [Concomitant]
  7. METOPROLOL [Concomitant]
  8. AMIODARONE HCL [Concomitant]
  9. RENAGEL [Concomitant]
  10. DIGOXIN [Concomitant]
  11. COUMADIN [Concomitant]
  12. CYCLOSPORINE [Concomitant]
  13. PREDNISONE [Concomitant]
  14. MINOXIDIL [Concomitant]
  15. CONTRAST MEDIA [Suspect]
     Indication: NUCLEAR MAGNETIC RESONANCE IMAGING BRAIN
     Route: 065
     Dates: start: 19940609, end: 19940609
  16. CONTRAST MEDIA [Suspect]
     Indication: SCAN
     Route: 065
     Dates: start: 20060101, end: 20060101
  17. CONTRAST MEDIA [Suspect]
     Indication: NUCLEAR MAGNETIC RESONANCE IMAGING
     Route: 065
     Dates: start: 19920807, end: 19920807

REACTIONS (1)
  - NEPHROGENIC SYSTEMIC FIBROSIS [None]
